FAERS Safety Report 4280295-8 (Version None)
Quarter: 2004Q1

REPORT INFORMATION
  Report Type: 
  Country: None (occurrence: None)
  Receive Date: 20040128
  Receipt Date: 20040126
  Transmission Date: 20041129
  Serious: Yes (Death, Hospitalization)
  Sender: FDA-Public Use
  Company Number: DE-BRISTOL-MYERS SQUIBB COMPANY-12488102

PATIENT
  Age: 73 Year
  Sex: Male
  Weight: 72 kg

DRUGS (8)
  1. CISPLATIN [Suspect]
     Indication: BRONCHIAL CARCINOMA
     Route: 042
     Dates: start: 20031127, end: 20031127
  2. GEMCITABINE [Suspect]
     Indication: BRONCHIAL CARCINOMA
     Route: 042
     Dates: start: 20031127, end: 20031127
  3. VINORELBINE [Suspect]
     Indication: BRONCHIAL CARCINOMA
     Route: 042
     Dates: start: 20031127, end: 20031127
  4. PHENPROCOUMON [Concomitant]
  5. AMITRIPTYLINE [Concomitant]
  6. PRAVASTATIN SODIUM [Concomitant]
  7. VALSARTAN [Concomitant]
  8. DIPYRONE [Concomitant]

REACTIONS (6)
  - BRONCHIAL CARCINOMA [None]
  - C-REACTIVE PROTEIN INCREASED [None]
  - DYSPNOEA [None]
  - PNEUMONIA [None]
  - PYREXIA [None]
  - SUDDEN DEATH [None]
